FAERS Safety Report 14568412 (Version 1)
Quarter: 2018Q1

REPORT INFORMATION
  Report Type: Report from Study
  Country: BR (occurrence: BR)
  Receive Date: 20180223
  Receipt Date: 20180223
  Transmission Date: 20180509
  Serious: Yes (Death, Disabling)
  Sender: FDA-Public Use
  Company Number: BR-B.I. PHARMACEUTICALS,INC./RIDGEFIELD-2018-BI-009955

PATIENT
  Age: 58 Year
  Sex: Male
  Weight: 43 kg

DRUGS (1)
  1. OFEV [Suspect]
     Active Substance: NINTEDANIB
     Indication: IDIOPATHIC PULMONARY FIBROSIS
     Route: 048

REACTIONS (14)
  - Choking [Unknown]
  - Asthenia [Unknown]
  - Speech disorder [Unknown]
  - Fear of eating [Unknown]
  - Idiopathic pulmonary fibrosis [Unknown]
  - Diarrhoea [Unknown]
  - Dyspnoea [Unknown]
  - Tongue disorder [Unknown]
  - Dyspnoea [Unknown]
  - Dysstasia [Unknown]
  - Asthenia [Unknown]
  - Tobacco user [Fatal]
  - Bedridden [Unknown]
  - Abdominal pain [Unknown]

NARRATIVE: CASE EVENT DATE: 201707
